FAERS Safety Report 5876933-6 (Version None)
Quarter: 2008Q3

REPORT INFORMATION
  Report Type: 
  Country: None (occurrence: None)
  Receive Date: 20080910
  Receipt Date: 20080903
  Transmission Date: 20090109
  Serious: Yes (Other)
  Sender: FDA-Public Use
  Company Number: US-CELGENEUS-163-21880-08070590

PATIENT
  Sex: Male

DRUGS (5)
  1. REVLIMID [Suspect]
     Indication: MULTIPLE MYELOMA
     Route: 048
     Dates: start: 20080128, end: 20080501
  2. REVLIMID [Suspect]
     Route: 048
     Dates: start: 20080710, end: 20080701
  3. REVLIMID [Suspect]
     Route: 048
     Dates: start: 20080820
  4. PLATELETS [Concomitant]
     Indication: DRUG USE FOR UNKNOWN INDICATION
     Route: 051
  5. ERYTHROPOETIN [Concomitant]
     Indication: ANAEMIA
     Dates: start: 20080401

REACTIONS (3)
  - BONE MARROW FAILURE [None]
  - MYELODYSPLASTIC SYNDROME [None]
  - PLATELET COUNT DECREASED [None]
